FAERS Safety Report 13265812 (Version 2)
Quarter: 2017Q1

REPORT INFORMATION
  Report Type: Spontaneous
  Country: US (occurrence: US)
  Receive Date: 20170223
  Receipt Date: 20170228
  Transmission Date: 20170428
  Serious: No
  Sender: FDA-Public Use
  Company Number: US-MYLANLABS-2012SP000393

PATIENT
  Sex: Female

DRUGS (9)
  1. VANCOMYCIN [Suspect]
     Active Substance: VANCOMYCIN
  2. AZITHROMYCIN ANHYDROUS. [Suspect]
     Active Substance: AZITHROMYCIN ANHYDROUS
  3. CINOBAC [Suspect]
     Active Substance: CINOXACIN
  4. LYRICA [Concomitant]
     Active Substance: PREGABALIN
     Route: 048
  5. HYDROCHLOROTHIAZIDE. [Suspect]
     Active Substance: HYDROCHLOROTHIAZIDE
  6. CODEINE [Suspect]
     Active Substance: CODEINE
  7. RIFAMPICIN [Suspect]
     Active Substance: RIFAMPIN
  8. ISONIAZID. [Suspect]
     Active Substance: ISONIAZID
  9. PROMETHAZINE HYDROCHLORIDE. [Suspect]
     Active Substance: PROMETHAZINE HYDROCHLORIDE

REACTIONS (1)
  - Hypersensitivity [Unknown]
